FAERS Safety Report 15763624 (Version 1)
Quarter: 2018Q4

REPORT INFORMATION
  Report Type: Spontaneous
  Country: US (occurrence: US)
  Receive Date: 20181227
  Receipt Date: 20181227
  Transmission Date: 20190205
  Serious: No
  Sender: FDA-Public Use
  Company Number: US-HIKMA PHARMACEUTICALS USA INC.-US-H14001-18-08157

PATIENT
  Age: 65 Year
  Sex: Female

DRUGS (2)
  1. DIPHENHYDRAMINE. [Suspect]
     Active Substance: DIPHENHYDRAMINE
     Indication: NAUSEA
  2. DIPHENHYDRAMINE. [Suspect]
     Active Substance: DIPHENHYDRAMINE
     Indication: VOMITING
     Dosage: 4 TO 6 VIALS PER DAY
     Route: 065

REACTIONS (1)
  - Product use in unapproved indication [Unknown]
